FAERS Safety Report 22998288 (Version 3)
Quarter: 2024Q1

REPORT INFORMATION
  Report Type: Spontaneous
  Country: US (occurrence: US)
  Receive Date: 20230928
  Receipt Date: 20240102
  Transmission Date: 20240410
  Serious: Yes (Hospitalization)
  Sender: FDA-Public Use
  Company Number: US-BRISTOL-MYERS SQUIBB COMPANY-2023-133948

PATIENT
  Age: 68 Year
  Sex: Female

DRUGS (2)
  1. SPRYCEL [Suspect]
     Active Substance: DASATINIB
     Indication: Acute lymphocytic leukaemia
     Route: 048
     Dates: start: 201507
  2. SPRYCEL [Suspect]
     Active Substance: DASATINIB
     Route: 048
     Dates: start: 201506

REACTIONS (5)
  - Chest pain [Unknown]
  - Insomnia [Unknown]
  - Depression [Unknown]
  - Weight decreased [Unknown]
  - Alopecia [Unknown]
